FAERS Safety Report 5376289-1 (Version None)
Quarter: 2007Q3

REPORT INFORMATION
  Report Type: 
  Country: None (occurrence: None)
  Receive Date: 20070702
  Receipt Date: 20070622
  Transmission Date: 20080115
  Serious: Yes (Hospitalization, Disabling)
  Sender: FDA-Public Use
  Company Number: BR-AVENTIS-200715367GDDC

PATIENT
  Age: 53 Year
  Sex: Male
  Weight: 95 kg

DRUGS (5)
  1. LANTUS [Suspect]
     Route: 058
     Dates: start: 20061001
  2. LANTUS [Suspect]
     Route: 058
     Dates: end: 20070611
  3. LANTUS [Suspect]
     Route: 058
  4. OPTIPEN (INSULIN PUMP) [Suspect]
     Route: 058
  5. NOVORAPID [Concomitant]
     Route: 058
     Dates: start: 20061001

REACTIONS (3)
  - EYE HAEMORRHAGE [None]
  - HYPERGLYCAEMIA [None]
  - VISION BLURRED [None]
